FAERS Safety Report 17032605 (Version 1)
Quarter: 2019Q4

REPORT INFORMATION
  Report Type: Spontaneous
  Country: US (occurrence: US)
  Receive Date: 20191014
  Receipt Date: 20191014
  Transmission Date: 20200122
  Serious: No
  Sender: FDA-Public Use
  Company Number: None

PATIENT
  Age: 40 Year
  Sex: Female

DRUGS (1)
  1. TECHNIVIE [Suspect]
     Active Substance: OMBITASVIR HEMINONAHYDRATE\PARITAPREVIR DIHYDRATE\RITONAVIR
     Route: 048
     Dates: start: 201809, end: 201809

REACTIONS (3)
  - Therapy cessation [None]
  - Malaise [None]
  - Bedridden [None]

NARRATIVE: CASE EVENT DATE: 20191014
